FAERS Safety Report 5764211-5 (Version None)
Quarter: 2008Q2

REPORT INFORMATION
  Report Type: 
  Country: None (occurrence: None)
  Receive Date: 20080604
  Receipt Date: 20080521
  Transmission Date: 20081010
  Serious: Yes (Death)
  Sender: FDA-Public Use
  Company Number: 2008AL005666

PATIENT
  Age: 82 Year
  Sex: Female

DRUGS (1)
  1. DIGOXIN [Suspect]
     Dosage: 0.125 MG, DAILY,  PO
     Route: 048

REACTIONS (4)
  - CARDIOMYOPATHY [None]
  - CORONARY ARTERY DISEASE [None]
  - FALL [None]
  - PERIPHERAL VASCULAR DISORDER [None]
